FAERS Safety Report 8456890-9 (Version None)
Quarter: 2012Q2

REPORT INFORMATION
  Report Type: 
  Country: None (occurrence: None)
  Receive Date: 20120614
  Receipt Date: 20120605
  Transmission Date: 20120825
  Serious: Yes (Other)
  Sender: FDA-Public Use
  Company Number: 2012HGS-003529

PATIENT
  Age: 42 Year
  Sex: Female
  Weight: 77.4 kg

DRUGS (7)
  1. MODAFINIL [Concomitant]
  2. BENLYSTA [Suspect]
     Indication: SYSTEMIC LUPUS ERYTHEMATOSUS
     Dosage: 1 IN 4 WK, INTRAVENOUS DRIP
     Route: 041
     Dates: start: 20120108
  3. NEXIUM [Concomitant]
  4. IBUPROFEN [Concomitant]
  5. MELOXICAM [Concomitant]
  6. FLUCONAZOLE [Concomitant]
  7. OXYCONTIN [Concomitant]

REACTIONS (9)
  - LYMPHADENOPATHY [None]
  - CONDITION AGGRAVATED [None]
  - THYROID NEOPLASM [None]
  - ABDOMINAL PAIN UPPER [None]
  - NAUSEA [None]
  - HEPATIC ENZYME INCREASED [None]
  - HALLUCINATION [None]
  - PYREXIA [None]
  - ABDOMINAL DISTENSION [None]
